FAERS Safety Report 5505520-4 (Version None)
Quarter: 2007Q4

REPORT INFORMATION
  Report Type: 
  Country: None (occurrence: None)
  Receive Date: 20071031
  Receipt Date: 20071023
  Transmission Date: 20080405
  Serious: Yes (Hospitalization)
  Sender: FDA-Public Use
  Company Number: L07-ITA-05626-01

PATIENT
  Age: 65 Year
  Sex: Female

DRUGS (2)
  1. CARBAMAZEPINE [Suspect]
     Indication: GLOSSODYNIA
     Dosage: 300 MG TID
  2. CARBAMAZEPINE [Suspect]
     Indication: GLOSSODYNIA
     Dosage: 200 MG TID

REACTIONS (9)
  - ANTICONVULSANT DRUG LEVEL INCREASED [None]
  - ATAXIA [None]
  - DIPLOPIA [None]
  - DIZZINESS [None]
  - GLOSSODYNIA [None]
  - ORAL PAIN [None]
  - RESPIRATORY RATE INCREASED [None]
  - SOMNOLENCE [None]
  - VISUAL DISTURBANCE [None]
